FAERS Safety Report 7760932-3 (Version None)
Quarter: 2011Q3

REPORT INFORMATION
  Report Type: 
  Country: None (occurrence: None)
  Receive Date: 20110919
  Receipt Date: 20110906
  Transmission Date: 20111222
  Serious: Yes (Death, Other)
  Sender: FDA-Public Use
  Company Number: GB-RANBAXY-2009RR-20534

PATIENT
  Age: 67 Year
  Sex: Male
  Weight: 76 kg

DRUGS (11)
  1. CHLORPROMAZINE [Concomitant]
     Indication: PSYCHOTIC DISORDER
  2. ACETAMINPHEN AND CODEINE PHOSPHATE [Suspect]
     Indication: PAIN
     Dosage: 2 DF, UNK
     Route: 048
     Dates: start: 20070521, end: 20070525
  3. ENOXAPARIN SODIUM [Concomitant]
     Indication: THROMBOSIS PROPHYLAXIS
     Dosage: 40 MG, UNK
     Route: 058
     Dates: start: 20070521, end: 20070525
  4. MORPHINE [Concomitant]
     Indication: PRODUCT USED FOR UNKNOWN INDICATION
     Dosage: 10 MG, UNK
     Route: 065
     Dates: start: 20070521, end: 20070522
  5. OLANZAPINE [Suspect]
     Indication: PSYCHOTIC DISORDER
  6. CEFUROXIME [Concomitant]
     Indication: PROPHYLAXIS
     Dosage: 750 MG, UNK
     Route: 042
     Dates: end: 20070522
  7. ASPIRIN [Concomitant]
     Indication: PRODUCT USED FOR UNKNOWN INDICATION
     Dosage: 150 MG, UNK
     Route: 048
  8. CHLORPROMAZINE [Concomitant]
     Indication: ANXIETY
     Dosage: 25 MG, BID
     Route: 048
  9. PROPRANOLOL [Concomitant]
     Indication: ANXIETY
     Dosage: 40 MG, BID
     Route: 048
  10. DICLOFENAC SODIUM [Concomitant]
     Indication: POSTOPERATIVE ANALGESIA
     Dosage: 50 MG, UNK
     Route: 048
     Dates: start: 20070522, end: 20070525
  11. OLANZAPINE [Suspect]
     Indication: ANXIETY
     Dosage: 15 MG, BID
     Route: 048
     Dates: start: 20030101

REACTIONS (3)
  - DRUG LEVEL ABOVE THERAPEUTIC [None]
  - CARDIAC ARREST [None]
  - FEMORAL NECK FRACTURE [None]
